FAERS Safety Report 10658602 (Version 2)
Quarter: 2015Q1

REPORT INFORMATION
  Report Type: Spontaneous
  Country: US (occurrence: US)
  Receive Date: 20141217
  Receipt Date: 20150313
  Transmission Date: 20150720
  Serious: No
  Sender: FDA-Public Use
  Company Number: US-009507513-1412USA006568

PATIENT
  Sex: Female
  Weight: 105.21 kg

DRUGS (1)
  1. NEXPLANON [Suspect]
     Active Substance: ETONOGESTREL
     Indication: CONTRACEPTION
     Dosage: LEFT ARM
     Route: 059
     Dates: start: 20141029, end: 20141204

REACTIONS (1)
  - Maternal exposure during pregnancy [Unknown]
